FAERS Safety Report 8077188-7 (Version None)
Quarter: 2012Q1

REPORT INFORMATION
  Report Type: 
  Country: None (occurrence: None)
  Receive Date: 20120127
  Receipt Date: 20120124
  Transmission Date: 20120608
  Serious: Yes (Hospitalization)
  Sender: FDA-Public Use
  Company Number: CO-ROCHE-1033213

PATIENT
  Sex: Male

DRUGS (1)
  1. MIRCERA [Suspect]
     Indication: HAEMOGLOBIN DECREASED
     Route: 058
     Dates: start: 20110907

REACTIONS (2)
  - DEVICE RELATED INFECTION [None]
  - ENDOCARDITIS [None]
